FAERS Safety Report 7875094-1 (Version None)
Quarter: 2011Q4

REPORT INFORMATION
  Report Type: 
  Country: None (occurrence: None)
  Receive Date: 20111031
  Receipt Date: 20111020
  Transmission Date: 20120403
  Serious: Yes (Other)
  Sender: FDA-Public Use
  Company Number: US-BIOGENIDEC-2011BI040570

PATIENT
  Age: 17 Year
  Sex: Male

DRUGS (1)
  1. TYSABRI [Suspect]
     Indication: MULTIPLE SCLEROSIS
     Route: 042
     Dates: start: 20110527, end: 20110819

REACTIONS (4)
  - MULTIPLE SCLEROSIS RELAPSE [None]
  - CONVULSION [None]
  - DRUG SPECIFIC ANTIBODY PRESENT [None]
  - DRUG INEFFECTIVE [None]
